FAERS Safety Report 4475312-6 (Version None)
Quarter: 2004Q4

REPORT INFORMATION
  Report Type: 
  Country: None (occurrence: None)
  Receive Date: 20041012
  Receipt Date: 20040927
  Transmission Date: 20050328
  Serious: Yes (Other)
  Sender: FDA-Public Use
  Company Number: 2004070920

PATIENT
  Sex: Female
  Weight: 70.3075 kg

DRUGS (10)
  1. NEURONTIN [Suspect]
     Indication: NEUROPATHY
     Dosage: 1500 MG (300 MG), ORAL;  1500 MG (600 MG, QID INTERVAL: EVERY DAY) , ORAL
     Route: 048
  2. ZOLOFT [Suspect]
     Indication: DEPRESSION
     Dosage: 50 MG (50 MG, 1 IN 1 D), ORAL
     Route: 048
  3. PRAVASTATIN SODIUM [Concomitant]
  4. TELMISARTIN (TEMISARTAN) [Concomitant]
  5. ASPIRIN [Concomitant]
  6. OMEPRAZOLE [Concomitant]
  7. IRON (IRON) [Concomitant]
  8. ALL OTHER THERAPEUTIC PRODUCTS (ALL OTHER THERAPEUTIC PRODUCTS) [Concomitant]
  9. QUININE (QUININE) [Concomitant]
  10. TEMAZEPAM [Concomitant]

REACTIONS (5)
  - ARTHRITIS [None]
  - BURNING SENSATION [None]
  - HEADACHE [None]
  - TRANSIENT ISCHAEMIC ATTACK [None]
  - WEIGHT INCREASED [None]
